FAERS Safety Report 8105178-4 (Version None)
Quarter: 2012Q1

REPORT INFORMATION
  Report Type: 
  Country: None (occurrence: None)
  Receive Date: 20120201
  Receipt Date: 20120119
  Transmission Date: 20120608
  Serious: Yes (Life-Threatening, Hospitalization)
  Sender: FDA-Public Use
  Company Number: DE-TEVA-318320GER

PATIENT
  Age: 67 Year
  Sex: Male
  Weight: 86 kg

DRUGS (1)
  1. IBUPROFEN [Suspect]
     Indication: SCIATICA
     Route: 048
     Dates: start: 20110901

REACTIONS (22)
  - BLOOD CREATININE INCREASED [None]
  - DECREASED APPETITE [None]
  - HAEMATURIA [None]
  - HAEMOLYTIC ANAEMIA [None]
  - SOMNOLENCE [None]
  - ANAEMIA [None]
  - LEUKOCYTOSIS [None]
  - IMMUNE SYSTEM DISORDER [None]
  - ERUCTATION [None]
  - JAUNDICE [None]
  - HYPERHIDROSIS [None]
  - CONSTIPATION [None]
  - BLOOD LACTATE DEHYDROGENASE INCREASED [None]
  - ASPARTATE AMINOTRANSFERASE INCREASED [None]
  - PYREXIA [None]
  - DIARRHOEA [None]
  - LABORATORY TEST ABNORMAL [None]
  - ALBUMINURIA [None]
  - WEIGHT DECREASED [None]
  - URINE ANALYSIS ABNORMAL [None]
  - HYPERBILIRUBINAEMIA [None]
  - HAEMOGLOBIN DECREASED [None]
